FAERS Safety Report 8377128-7 (Version None)
Quarter: 2012Q2

REPORT INFORMATION
  Report Type: 
  Country: None (occurrence: None)
  Receive Date: 20120521
  Receipt Date: 20120511
  Transmission Date: 20120825
  Serious: Yes (Hospitalization, Other)
  Sender: FDA-Public Use
  Company Number: 2012P1017318

PATIENT
  Age: 70 Year
  Sex: Male
  Weight: 83.9154 kg

DRUGS (7)
  1. ASPIRIN [Concomitant]
  2. FISH OIL [Concomitant]
  3. TOPROL-XL [Concomitant]
  4. CO Q 10 [Concomitant]
  5. CEPHALEXIN [Suspect]
     Indication: SKIN LESION
     Dosage: 500 MG; TID;
     Dates: start: 20120101, end: 20120101
  6. PRINIVIL [Concomitant]
  7. VITAMIN B COMPLEX CAP [Concomitant]

REACTIONS (10)
  - DIARRHOEA [None]
  - ASTHENIA [None]
  - OEDEMA PERIPHERAL [None]
  - PULMONARY OEDEMA [None]
  - LOCALISED INTRAABDOMINAL FLUID COLLECTION [None]
  - DYSPNOEA [None]
  - ABDOMINAL PAIN UPPER [None]
  - CARDIAC FAILURE CONGESTIVE [None]
  - CONDITION AGGRAVATED [None]
  - CONSTIPATION [None]
